FAERS Safety Report 7331780-3 (Version None)
Quarter: 2011Q1

REPORT INFORMATION
  Report Type: 
  Country: None (occurrence: None)
  Receive Date: 20110224
  Receipt Date: 20110215
  Transmission Date: 20110831
  Serious: Yes (Hospitalization)
  Sender: FDA-Public Use
  Company Number: 2011SP007281

PATIENT
  Age: 62 Year
  Sex: Female
  Weight: 45 kg

DRUGS (7)
  1. ABILIFY [Suspect]
     Indication: MAJOR DEPRESSION
     Dosage: 5 MG, QD; PO
     Route: 048
     Dates: start: 20101218, end: 20110110
  2. LITHIOFOR [Concomitant]
  3. TRANXILIUM [Concomitant]
  4. HALDOL [Concomitant]
  5. EFFEXOR [Suspect]
     Indication: MAJOR DEPRESSION
     Dosage: 225 MG, QD; PO, 150 MG, BID; PO
     Route: 048
     Dates: start: 20101218, end: 20110110
  6. EFFEXOR [Suspect]
     Indication: MAJOR DEPRESSION
     Dosage: 225 MG, QD; PO, 150 MG, BID; PO
     Route: 048
     Dates: start: 20100101, end: 20101217
  7. REMERON [Suspect]
     Indication: MAJOR DEPRESSION
     Dosage: 45 MG, QD; PO
     Route: 048
     Dates: start: 20100101, end: 20110110

REACTIONS (9)
  - BRUXISM [None]
  - MENTAL DISORDER [None]
  - MALNUTRITION [None]
  - CATATONIA [None]
  - GENERAL PHYSICAL HEALTH DETERIORATION [None]
  - SALIVARY HYPERSECRETION [None]
  - NEUROLEPTIC MALIGNANT SYNDROME [None]
  - SEROTONIN SYNDROME [None]
  - EXTRAPYRAMIDAL DISORDER [None]
